FAERS Safety Report 21854033 (Version 1)
Quarter: 2023Q1

REPORT INFORMATION
  Report Type: Spontaneous
  Country: US (occurrence: US)
  Receive Date: 20230112
  Receipt Date: 20230112
  Transmission Date: 20230417
  Serious: No
  Sender: FDA-Public Use
  Company Number: US-PFIZER INC-202300011625

PATIENT
  Age: 50 Year
  Sex: Female

DRUGS (20)
  1. XELJANZ XR [Suspect]
     Active Substance: TOFACITINIB CITRATE
     Dosage: 11 MG, 1X/DAY
     Route: 048
     Dates: start: 202205
  2. TIZANIDINE [Concomitant]
     Active Substance: TIZANIDINE
  3. QUETIAPINE [Concomitant]
     Active Substance: QUETIAPINE
  4. SUNOSI [Concomitant]
     Active Substance: SOLRIAMFETOL
  5. SHINGRIX [Concomitant]
     Active Substance: RECOMBINANT VARICELLA ZOSTER VIRUS (VZV) GLYCOPROTEIN E
  6. PREGABALIN [Concomitant]
     Active Substance: PREGABALIN
  7. CELECOXIB [Concomitant]
     Active Substance: CELECOXIB
  8. AIMOVIG [Concomitant]
     Active Substance: ERENUMAB-AOOE
     Dosage: AUTOINJECTOR
  9. LEVOTHYROXINE [Concomitant]
     Active Substance: LEVOTHYROXINE
  10. ACETAMINOPHEN AND CODEINE [Concomitant]
     Active Substance: ACETAMINOPHEN\CODEINE PHOSPHATE
  11. DULOXETINE [Concomitant]
     Active Substance: DULOXETINE
  12. FIBER (CALCIUM POLYCARBOPHIL) [Concomitant]
     Active Substance: CALCIUM POLYCARBOPHIL
  13. LEFLUNOMIDE [Concomitant]
     Active Substance: LEFLUNOMIDE
  14. LUTEIN [Concomitant]
     Active Substance: LUTEIN
  15. RIZATRIPTAN [Concomitant]
     Active Substance: RIZATRIPTAN
  16. ROPINIROLE [Concomitant]
     Active Substance: ROPINIROLE
     Dosage: ^ROPINIROLE ER^
  17. SEROQUEL [Concomitant]
     Active Substance: QUETIAPINE FUMARATE
  18. SYNTHROID [Concomitant]
     Active Substance: LEVOTHYROXINE SODIUM
  19. HERBALS\TURMERIC [Concomitant]
     Active Substance: HERBALS\TURMERIC
  20. VITAMIN D3 [Concomitant]
     Active Substance: CHOLECALCIFEROL

REACTIONS (2)
  - Pain in extremity [Not Recovered/Not Resolved]
  - Product dose omission in error [Unknown]

NARRATIVE: CASE EVENT DATE: 20220101
